FAERS Safety Report 11306725 (Version 2)
Quarter: 2015Q3

REPORT INFORMATION
  Report Type: Spontaneous
  Country: RU (occurrence: RU)
  Receive Date: 20150723
  Receipt Date: 20150806
  Transmission Date: 20151125
  Serious: Yes (Death, Life-Threatening, Hospitalization, Disabling, Other)
  Sender: FDA-Public Use
  Company Number: DE-GILEAD-2015-0158766

PATIENT
  Age: 77 Year
  Sex: Male
  Weight: 80 kg

DRUGS (10)
  1. CLOPIDOGREL [Concomitant]
     Active Substance: CLOPIDOGREL BISULFATE
     Indication: CORONARY ANGIOPLASTY
     Dosage: UNK
     Dates: start: 2002
  2. SITAGLIPTIN [Concomitant]
     Active Substance: SITAGLIPTIN
     Indication: TYPE 2 DIABETES MELLITUS
     Dosage: UNK
  3. RIVAROXABAN [Concomitant]
     Active Substance: RIVAROXABAN
     Indication: ANTICOAGULANT THERAPY
  4. HCT [Concomitant]
     Active Substance: HYDROCHLOROTHIAZIDE
     Dosage: UNK
     Dates: start: 1999
  5. ATENOLOL. [Concomitant]
     Active Substance: ATENOLOL
     Indication: CARDIAC FAILURE
     Dosage: UNK
     Dates: start: 1999
  6. ASPIRIN                            /00002701/ [Concomitant]
     Active Substance: ASPIRIN
     Indication: ANTICOAGULANT THERAPY
     Dosage: UNK
     Dates: start: 1999
  7. CLOPIDOGREL [Concomitant]
     Active Substance: CLOPIDOGREL BISULFATE
     Indication: STENT PLACEMENT
  8. SPIRONOLACTON [Concomitant]
     Active Substance: SPIRONOLACTONE
     Dosage: UNK
     Dates: start: 1999
  9. ZYDELIG [Suspect]
     Active Substance: IDELALISIB
     Indication: PRODUCT USED FOR UNKNOWN INDICATION
     Dosage: UNK
     Route: 065
     Dates: end: 20150528
  10. ASPIRIN                            /00002701/ [Concomitant]
     Active Substance: ASPIRIN
     Indication: CARDIAC FAILURE CONGESTIVE

REACTIONS (16)
  - Sepsis [Fatal]
  - Bacterial infection [Unknown]
  - Herpes virus infection [Unknown]
  - Bronchoalveolar lavage abnormal [Unknown]
  - Atypical pneumonia [Unknown]
  - Pyrexia [Not Recovered/Not Resolved]
  - Computerised tomogram thorax abnormal [Unknown]
  - Respiratory failure [Unknown]
  - Disturbance in attention [Unknown]
  - General physical health deterioration [Unknown]
  - Impaired self-care [Unknown]
  - Pneumonia [Not Recovered/Not Resolved]
  - Chest X-ray abnormal [Unknown]
  - Dyspnoea exertional [Unknown]
  - Herpes dermatitis [Unknown]
  - Unevaluable event [Unknown]

NARRATIVE: CASE EVENT DATE: 20150511
